FAERS Safety Report 16104670 (Version 1)
Quarter: 2019Q1

REPORT INFORMATION
  Report Type: Spontaneous
  Country: US (occurrence: US)
  Receive Date: 20190322
  Receipt Date: 20190322
  Transmission Date: 20190418
  Serious: Yes (Death)
  Sender: FDA-Public Use
  Company Number: US-ELITE LABORATORIES INC.-2019ELT00005

PATIENT
  Age: 27 Year
  Sex: Female

DRUGS (7)
  1. BENADRYL [Suspect]
     Active Substance: DIPHENHYDRAMINE HYDROCHLORIDE
  2. ZOLOFT [Suspect]
     Active Substance: SERTRALINE HYDROCHLORIDE
  3. XANAX [Suspect]
     Active Substance: ALPRAZOLAM
  4. PHENTERMINE. [Suspect]
     Active Substance: PHENTERMINE
  5. FENTANYL. [Suspect]
     Active Substance: FENTANYL
  6. CYMBALTA [Suspect]
     Active Substance: DULOXETINE HYDROCHLORIDE
  7. HEROIN [Suspect]
     Active Substance: DIAMORPHINE

REACTIONS (2)
  - Cardiac arrest [Fatal]
  - Poisoning [Fatal]

NARRATIVE: CASE EVENT DATE: 20170809
